FAERS Safety Report 25200676 (Version 1)
Quarter: 2025Q2

REPORT INFORMATION
  Report Type: Spontaneous
  Country: US (occurrence: US)
  Receive Date: 20250415
  Receipt Date: 20250415
  Transmission Date: 20250716
  Serious: No
  Sender: BAYER
  Company Number: US-BAYER-2025A049035

PATIENT
  Age: 19 Year
  Sex: Female

DRUGS (1)
  1. KYLEENA [Suspect]
     Active Substance: LEVONORGESTREL
     Dosage: 17.5?G/DAY
     Route: 015
     Dates: start: 202411

REACTIONS (4)
  - Hypomenorrhoea [None]
  - Abdominal pain lower [None]
  - Mood swings [None]
  - Dyspareunia [None]

NARRATIVE: CASE EVENT DATE: 20250101
